FAERS Safety Report 10354477 (Version 3)
Quarter: 2014Q4

REPORT INFORMATION
  Report Type: Report from Study
  Country: CA (occurrence: CA)
  Receive Date: 20140731
  Receipt Date: 20141027
  Transmission Date: 20150528
  Serious: Yes (Other)
  Sender: FDA-Public Use
  Company Number: CA-ABBVIE-14P-028-1263706-00

PATIENT
  Age: 55 Year
  Sex: Male
  Weight: 95 kg

DRUGS (4)
  1. DILANTIN [Concomitant]
     Active Substance: PHENYTOIN
  2. HUMIRA [Suspect]
     Active Substance: ADALIMUMAB
     Indication: PSORIATIC ARTHROPATHY
     Route: 058
     Dates: start: 20140715
  3. DILANTIN [Concomitant]
     Active Substance: PHENYTOIN
     Indication: PRODUCT USED FOR UNKNOWN INDICATION
  4. HUMIRA [Suspect]
     Active Substance: ADALIMUMAB
     Route: 058

REACTIONS (8)
  - Contusion [Not Recovered/Not Resolved]
  - Seizure [Unknown]
  - Pain in extremity [Unknown]
  - Laceration [Not Recovered/Not Resolved]
  - Musculoskeletal stiffness [Unknown]
  - Feeling abnormal [Unknown]
  - Peripheral swelling [Not Recovered/Not Resolved]
  - Drug level decreased [Unknown]

NARRATIVE: CASE EVENT DATE: 201407
